FAERS Safety Report 24186588 (Version 3)
Quarter: 2025Q2

REPORT INFORMATION
  Report Type: Report from Study
  Country: PE (occurrence: PE)
  Receive Date: 20240808
  Receipt Date: 20250407
  Transmission Date: 20250717
  Serious: Yes (Other)
  Sender: NOVARTIS
  Company Number: PE-002147023-NVSC2024PE149300

PATIENT
  Age: 62 Year
  Sex: Female

DRUGS (5)
  1. KISQALI [Suspect]
     Active Substance: RIBOCICLIB
     Indication: Breast cancer
     Dosage: 600 MG, QD
     Route: 048
     Dates: start: 20240715
  2. KISQALI [Suspect]
     Active Substance: RIBOCICLIB
     Indication: Breast cancer metastatic
     Dosage: 600 MG, QD
     Route: 048
     Dates: start: 20240716, end: 202503
  3. LETROZOLE [Suspect]
     Active Substance: LETROZOLE
     Indication: Product used for unknown indication
     Route: 065
  4. ANASTROZOLE [Concomitant]
     Active Substance: ANASTROZOLE
     Indication: Breast cancer
     Route: 065
  5. DEFLAZACORT [Concomitant]
     Active Substance: DEFLAZACORT
     Indication: Rheumatoid arthritis
     Route: 065

REACTIONS (24)
  - Hepatitis [Unknown]
  - Hypertension [Unknown]
  - Bone pain [Unknown]
  - Fatigue [Unknown]
  - Condition aggravated [Unknown]
  - Decreased appetite [Unknown]
  - Nausea [Unknown]
  - Insomnia [Unknown]
  - Rash [Recovered/Resolved]
  - Somnolence [Unknown]
  - Dizziness [Unknown]
  - Erythema [Recovered/Resolved]
  - Malaise [Unknown]
  - Nervousness [Unknown]
  - Abdominal pain upper [Unknown]
  - Headache [Unknown]
  - Abdominal discomfort [Unknown]
  - Salivary hypersecretion [Unknown]
  - Blood glucose decreased [Unknown]
  - Discomfort [Unknown]
  - Chills [Unknown]
  - Pain [Unknown]
  - Gait disturbance [Unknown]
  - Product availability issue [Unknown]

NARRATIVE: CASE EVENT DATE: 20240716
